FAERS Safety Report 18016202 (Version 1)
Quarter: 2020Q3

REPORT INFORMATION
  Report Type: Spontaneous
  Country: DK (occurrence: DK)
  Receive Date: 20200713
  Receipt Date: 20200713
  Transmission Date: 20201103
  Serious: Yes (Hospitalization)
  Sender: FDA-Public Use
  Company Number: NVSC2020DK193046

PATIENT
  Age: 62 Year
  Sex: Male

DRUGS (6)
  1. AMOROLFINE [Concomitant]
     Active Substance: AMOROLFINE
     Indication: ONYCHOMYCOSIS
     Dosage: 2 DF, Q3MO (EVERY 1 TRIMESTER)
     Route: 048
     Dates: start: 20200423
  2. PARACETAMOL [Concomitant]
     Active Substance: ACETAMINOPHEN
     Indication: PAIN
     Dosage: 1000 MG (AS NECESSARY)
     Route: 048
  3. LOSARTAN AND HYDROCHLOROTHIAZIDE [Concomitant]
     Active Substance: HYDROCHLOROTHIAZIDE\LOSARTAN POTASSIUM
     Indication: HYPERTENSION
     Dosage: 1 DF, QD
     Route: 048
  4. TERBINAFINE. [Concomitant]
     Active Substance: TERBINAFINE
     Indication: FUNGAL INFECTION
     Dosage: 250 MG, QD
     Route: 048
     Dates: start: 20200423, end: 20200512
  5. DICILLIN [Suspect]
     Active Substance: DICLOXACILLIN SODIUM
     Indication: LOCALISED INFECTION
     Dosage: 3000 MG, QD
     Route: 048
     Dates: start: 20200424, end: 20200512
  6. IPREN [Suspect]
     Active Substance: IBUPROFEN
     Indication: TENSION HEADACHE
     Dosage: UNK (EVERY)
     Route: 065
     Dates: start: 20200305, end: 20200512

REACTIONS (3)
  - Blood creatinine increased [Unknown]
  - Tubulointerstitial nephritis [Recovering/Resolving]
  - Acute kidney injury [Recovering/Resolving]

NARRATIVE: CASE EVENT DATE: 202005
